FAERS Safety Report 4502898-5 (Version None)
Quarter: 2004Q4

REPORT INFORMATION
  Report Type: 
  Country: None (occurrence: None)
  Receive Date: 20041112
  Receipt Date: 20041104
  Transmission Date: 20050328
  Serious: Yes (Life-Threatening, Hospitalization)
  Sender: FDA-Public Use
  Company Number: 04H-163-0279933-00

PATIENT
  Sex: Male

DRUGS (1)
  1. LIDOCAINE HCL INJ [Suspect]
     Indication: ACCIDENTAL EXPOSURE
     Dosage: 6 ML, ONE DOSE OF 1%, INJECTION

REACTIONS (7)
  - COMPLICATIONS OF MATERNAL EXPOSURE TO THERAPEUTIC DRUGS [None]
  - CONVULSION NEONATAL [None]
  - DRUG TOXICITY [None]
  - HYPOTONIA NEONATAL [None]
  - NEONATAL APNOEIC ATTACK [None]
  - NEONATAL DISORDER [None]
  - WOUND [None]
